FAERS Safety Report 8555537-0 (Version None)
Quarter: 2012Q3

REPORT INFORMATION
  Report Type: 
  Country: None (occurrence: None)
  Receive Date: 20120731
  Receipt Date: 20110920
  Transmission Date: 20120928
  Serious: No
  Sender: FDA-Public Use
  Company Number: US-ASTRAZENECA-2010SE59019

PATIENT
  Age: 55 Year
  Sex: Female
  Weight: 77.1 kg

DRUGS (8)
  1. LISINOPRIL [Concomitant]
  2. SEROQUEL [Suspect]
     Route: 048
     Dates: start: 20090101
  3. PRILOSEC OTC [Concomitant]
  4. ESTRACE [Concomitant]
  5. SEROQUEL [Suspect]
     Route: 048
     Dates: start: 20101201
  6. SEROQUEL [Suspect]
     Route: 048
  7. HORMONE REPLACEMENT [Concomitant]
  8. SEROQUEL [Suspect]
     Indication: BIPOLAR DISORDER
     Route: 048

REACTIONS (16)
  - MOOD SWINGS [None]
  - RESTLESS LEGS SYNDROME [None]
  - PAIN [None]
  - HOT FLUSH [None]
  - HYPERHIDROSIS [None]
  - SWOLLEN TONGUE [None]
  - BALANCE DISORDER [None]
  - IMPAIRED WORK ABILITY [None]
  - COLD SWEAT [None]
  - NAUSEA [None]
  - DIARRHOEA [None]
  - DIZZINESS [None]
  - FLUSHING [None]
  - DRUG DOSE OMISSION [None]
  - RHINORRHOEA [None]
  - INCORRECT DOSE ADMINISTERED [None]
